FAERS Safety Report 8269461-4 (Version None)
Quarter: 2012Q2

REPORT INFORMATION
  Report Type: 
  Country: None (occurrence: None)
  Receive Date: 20120409
  Receipt Date: 20120403
  Transmission Date: 20120825
  Serious: Yes (Other)
  Sender: FDA-Public Use
  Company Number: US-ABBOTT-12P-163-0913324-00

PATIENT
  Sex: Female
  Weight: 78.996 kg

DRUGS (14)
  1. LEVOXYL [Concomitant]
     Indication: HYPOTHYROIDISM
  2. CALCIUM +D [Concomitant]
     Indication: MINERAL SUPPLEMENTATION
  3. CELEBREX [Concomitant]
     Indication: RHEUMATOID ARTHRITIS
  4. XANAX [Concomitant]
     Indication: INSOMNIA
  5. HUMIRA [Suspect]
     Indication: RHEUMATOID ARTHRITIS
     Dates: start: 20090601
  6. METHOTREXATE [Concomitant]
     Indication: RHEUMATOID ARTHRITIS
  7. UNKNOWN NEBULIZER [Concomitant]
     Indication: EMPHYSEMA
  8. SIMVASTATIN [Concomitant]
     Indication: BLOOD CHOLESTEROL INCREASED
  9. HUMIRA [Suspect]
     Dates: start: 20120201
  10. COLACE [Concomitant]
     Indication: CONSTIPATION PROPHYLAXIS
  11. GENERIC ZOCOR [Concomitant]
     Indication: BLOOD CHOLESTEROL INCREASED
  12. HYDROCHLOROTHIAZIDE [Concomitant]
     Indication: OEDEMA
  13. NORCO [Concomitant]
     Indication: RHEUMATOID ARTHRITIS
  14. FOLIC ACID [Concomitant]
     Indication: VITAMIN SUPPLEMENTATION

REACTIONS (6)
  - OSTEOARTHRITIS [None]
  - FUNGAL INFECTION [None]
  - ONYCHOCLASIS [None]
  - URINARY TRACT INFECTION [None]
  - ARTHRITIS [None]
  - PAIN [None]
